FAERS Safety Report 26138155 (Version 2)
Quarter: 2025Q4

REPORT INFORMATION
  Report Type: Spontaneous
  Country: EU (occurrence: EU)
  Receive Date: 20251210
  Receipt Date: 20251223
  Transmission Date: 20260117
  Serious: Yes (Life-Threatening, Hospitalization, Other)
  Sender: AUROBINDO
  Company Number: EU-MLMSERVICE-20251121-PI719820-00270-2

PATIENT
  Age: 61 Year
  Sex: Female

DRUGS (7)
  1. METHOTREXATE [Suspect]
     Active Substance: METHOTREXATE
     Indication: Undifferentiated connective tissue disease
     Dosage: UNK
     Route: 065
  2. METHYLPREDNISOLONE [Suspect]
     Active Substance: METHYLPREDNISOLONE
     Indication: Undifferentiated connective tissue disease
     Dosage: 16 MILLIGRAM, ONCE A DAY
     Route: 061
  3. METHYLPREDNISOLONE [Suspect]
     Active Substance: METHYLPREDNISOLONE
     Dosage: 8 MILLIGRAM, ONCE A DAY (TAPERING)
     Route: 061
  4. METHYLPREDNISOLONE [Suspect]
     Active Substance: METHYLPREDNISOLONE
     Dosage: 4 MILLIGRAM, ONCE A DAY (TAPERING)
     Route: 061
  5. HYDROXYCHLOROQUINE [Suspect]
     Active Substance: HYDROXYCHLOROQUINE
     Indication: Undifferentiated connective tissue disease
     Dosage: 200 MILLIGRAM, ONCE A DAY
     Route: 065
  6. DENOSUMAB [Suspect]
     Active Substance: DENOSUMAB
     Indication: Osteoporosis
     Dosage: 60 MILLIGRAM
  7. PROLIA [Suspect]
     Active Substance: DENOSUMAB
     Indication: Osteoporosis
     Dosage: UNK

REACTIONS (10)
  - Visceral leishmaniasis [Recovered/Resolved]
  - Septic shock [Recovered/Resolved]
  - Pancytopenia [Recovered/Resolved]
  - Urinary tract infection bacterial [Recovered/Resolved]
  - Escherichia infection [Recovered/Resolved]
  - Disease recurrence [Recovered/Resolved]
  - Escherichia urinary tract infection [Recovered/Resolved]
  - Hypogammaglobulinaemia [Recovered/Resolved]
  - Haematological infection [Unknown]
  - Immunodeficiency common variable [Recovered/Resolved]

NARRATIVE: CASE EVENT DATE: 20180101
